FAERS Safety Report 4882142-X (Version None)
Quarter: 2006Q1

REPORT INFORMATION
  Report Type: 
  Country: None (occurrence: None)
  Receive Date: 20060112
  Receipt Date: 20060103
  Transmission Date: 20060701
  Serious: Yes (Hospitalization)
  Sender: FDA-Public Use
  Company Number: US-2005-027150

PATIENT
  Age: 50 Year
  Sex: Female
  Weight: 56.2 kg

DRUGS (12)
  1. BETASERON [Suspect]
     Indication: MULTIPLE SCLEROSIS
     Dosage: 8 MIU, EVERY 2D, SUBCUTANEOUS
     Route: 058
     Dates: start: 20030616, end: 20051212
  2. CELEXA [Concomitant]
  3. VASOTEC [Concomitant]
  4. LIPITOR/NET/ (ATORVASTATIN CALCIUM) [Concomitant]
  5. DETROL [Concomitant]
  6. LORATADINE [Concomitant]
  7. KLONOPIN [Concomitant]
  8. VITAMIN PREPARATION COMPOUND (VITAMINS NOS) [Concomitant]
  9. CALCIUM (CALCIUM) [Concomitant]
  10. ASPIRIN [Concomitant]
  11. NOVOLOG [Concomitant]
  12. LANTUS [Concomitant]

REACTIONS (4)
  - ANOREXIA [None]
  - BLOOD GLUCOSE INCREASED [None]
  - DEPRESSION [None]
  - WEIGHT DECREASED [None]
